FAERS Safety Report 24381629 (Version 1)
Quarter: 2024Q4

REPORT INFORMATION
  Report Type: Spontaneous
  Country: US (occurrence: US)
  Receive Date: 20241001
  Receipt Date: 20241001
  Transmission Date: 20250114
  Serious: Yes (Other)
  Sender: BOEHRINGER INGELHEIM
  Company Number: US-Komodo Health-a23aa000003N8ETAA0

PATIENT
  Age: 51 Year
  Sex: Female

DRUGS (3)
  1. GILOTRIF [Suspect]
     Active Substance: AFATINIB
     Indication: Product used for unknown indication
  2. GILOTRIF [Suspect]
     Active Substance: AFATINIB
     Dates: start: 201705, end: 201912
  3. TAGRISSO [Concomitant]
     Active Substance: OSIMERTINIB
     Indication: Product used for unknown indication
     Dates: start: 202012

REACTIONS (6)
  - Lung adenocarcinoma stage IV [Not Recovered/Not Resolved]
  - Drug ineffective [Unknown]
  - Fatigue [Unknown]
  - Diarrhoea [Unknown]
  - Skin fissures [Unknown]
  - Gene mutation identification test positive [Not Recovered/Not Resolved]
